FAERS Safety Report 5259921-2 (Version None)
Quarter: 2007Q1

REPORT INFORMATION
  Report Type: 
  Country: None (occurrence: None)
  Receive Date: 20070309
  Receipt Date: 20070306
  Transmission Date: 20070707
  Serious: Yes (Hospitalization, Congenital Anomaly)
  Sender: FDA-Public Use
  Company Number: US-GLAXOSMITHKLINE-A0606369A

PATIENT
  Sex: Male
  Weight: 3.6 kg

DRUGS (5)
  1. PAXIL [Suspect]
     Dosage: 20MG PER DAY
     Dates: start: 20010101
  2. DIFLUCAN [Concomitant]
  3. TERAZOL 7 [Concomitant]
  4. IRON [Concomitant]
  5. VICODIN [Concomitant]

REACTIONS (18)
  - ATELECTASIS [None]
  - ATRIAL SEPTAL DEFECT [None]
  - BUNDLE BRANCH BLOCK RIGHT [None]
  - CARDIAC MURMUR [None]
  - CYANOSIS [None]
  - DECREASED APPETITE [None]
  - DRUG EXPOSURE DURING PREGNANCY [None]
  - FAILURE TO THRIVE [None]
  - FALLOT'S TETRALOGY [None]
  - HEART DISEASE CONGENITAL [None]
  - PLEURAL EFFUSION [None]
  - PULMONARY VALVE INCOMPETENCE [None]
  - PULMONARY VALVE STENOSIS [None]
  - STRIDOR [None]
  - TAKAYASU'S ARTERITIS [None]
  - UPPER RESPIRATORY TRACT INFECTION [None]
  - VENTRICULAR HYPERTROPHY [None]
  - VENTRICULAR SEPTAL DEFECT [None]
